FAERS Safety Report 23140922 (Version 1)
Quarter: 2023Q4

REPORT INFORMATION
  Report Type: Report from Study
  Country: US (occurrence: US)
  Receive Date: 20231103
  Receipt Date: 20231103
  Transmission Date: 20240110
  Serious: No
  Sender: FDA-Public Use
  Company Number: US-ACADIA PHARMACEUTICALS INC.-ACA-2023-PIM-004649

PATIENT
  Sex: Male

DRUGS (10)
  1. NUPLAZID [Suspect]
     Active Substance: PIMAVANSERIN TARTRATE
     Indication: Parkinson^s disease
     Dosage: 34 MILLIGRAM, QD
     Route: 048
     Dates: start: 202201
  2. IPRATROPIUM [Concomitant]
     Active Substance: IPRATROPIUM
  3. OXYGEN [Concomitant]
     Active Substance: OXYGEN
  4. CARBIDOPA [Concomitant]
     Active Substance: CARBIDOPA
  5. ATORVASTATIN [Concomitant]
     Active Substance: ATORVASTATIN
  6. ASPIRIN [Concomitant]
     Active Substance: ASPIRIN
  7. MELOXICAM [Concomitant]
     Active Substance: MELOXICAM
  8. RIVASTIGMINE [Concomitant]
     Active Substance: RIVASTIGMINE
  9. OMEPRAZOLE [Concomitant]
     Active Substance: OMEPRAZOLE
  10. INDOMETHACIN [Concomitant]
     Active Substance: INDOMETHACIN

REACTIONS (2)
  - Product dose omission issue [Unknown]
  - Hallucination [Unknown]
